FAERS Safety Report 14357028 (Version 1)
Quarter: 2018Q1

REPORT INFORMATION
  Report Type: Report from Study
  Country: IN (occurrence: IN)
  Receive Date: 20180105
  Receipt Date: 20180105
  Transmission Date: 20180509
  Serious: Yes (Hospitalization)
  Sender: FDA-Public Use
  Company Number: PHHY2017IN193811

PATIENT
  Age: 64 Year
  Sex: Female

DRUGS (2)
  1. SCAPHO [Suspect]
     Active Substance: SECUKINUMAB
     Dosage: 150 MG, QW
     Route: 058
     Dates: start: 20171228
  2. SCAPHO [Suspect]
     Active Substance: SECUKINUMAB
     Indication: ANKYLOSING SPONDYLITIS
     Dosage: 150 MG, QW
     Route: 058
     Dates: start: 20171207

REACTIONS (12)
  - Pain [Recovered/Resolved]
  - Peripheral swelling [Recovering/Resolving]
  - Pain in extremity [Unknown]
  - Hepatic steatosis [Unknown]
  - Finger deformity [Unknown]
  - Back pain [Unknown]
  - Gait inability [Unknown]
  - Tenderness [Recovering/Resolving]
  - Arthralgia [Recovering/Resolving]
  - Sensory disturbance [Unknown]
  - Pain [Recovered/Resolved]
  - Sleep disorder [Unknown]

NARRATIVE: CASE EVENT DATE: 20171222
